FAERS Safety Report 10414511 (Version 2)
Quarter: 2014Q3

REPORT INFORMATION
  Report Type: Report from Study
  Country: US (occurrence: US)
  Receive Date: 20140828
  Receipt Date: 20140915
  Transmission Date: 20150326
  Serious: Yes (Other)
  Sender: FDA-Public Use
  Company Number: US-BIOGENIDEC-2014BI085682

PATIENT
  Age: 37 Year
  Sex: Female

DRUGS (5)
  1. TYLENOL [Concomitant]
     Active Substance: ACETAMINOPHEN
  2. ADVIL [Concomitant]
     Active Substance: IBUPROFEN
  3. XANAFLEX [Concomitant]
  4. PENICILLIN [Concomitant]
     Active Substance: PENICILLIN
  5. TYSABRI [Suspect]
     Active Substance: NATALIZUMAB
     Indication: MULTIPLE SCLEROSIS
     Route: 042
     Dates: start: 20140528, end: 20140528

REACTIONS (8)
  - Malaise [Not Recovered/Not Resolved]
  - Fall [Recovered/Resolved]
  - Aphasia [Unknown]
  - Multiple sclerosis [Not Recovered/Not Resolved]
  - Convulsion [Recovered/Resolved]
  - Nuclear magnetic resonance imaging abnormal [Recovered/Resolved]
  - Abasia [Recovered/Resolved]
  - Feeling abnormal [Unknown]

NARRATIVE: CASE EVENT DATE: 2014
